FAERS Safety Report 6371208-3 (Version None)
Quarter: 2009Q3

REPORT INFORMATION
  Report Type: 
  Country: None (occurrence: None)
  Receive Date: 20090923
  Receipt Date: 20071030
  Transmission Date: 20100115
  Serious: No
  Sender: FDA-Public Use
  Company Number: US-ASTRAZENECA-2006UW27731

PATIENT
  Age: 20421 Day
  Sex: Male
  Weight: 88.5 kg

DRUGS (29)
  1. SEROQUEL [Suspect]
     Indication: SCHIZOPHRENIA
     Dosage: 25 MG-200 MG, 200 MG 3 PILLS A DAY.
     Route: 048
     Dates: start: 20020322
  2. SEROQUEL [Suspect]
     Indication: BIPOLAR I DISORDER
     Dosage: 25 MG-200 MG, 200 MG 3 PILLS A DAY.
     Route: 048
     Dates: start: 20020322
  3. SEROQUEL [Suspect]
     Indication: DEPRESSION
     Dosage: 25 MG-200 MG, 200 MG 3 PILLS A DAY.
     Route: 048
     Dates: start: 20020322
  4. SEROQUEL [Suspect]
     Route: 048
     Dates: start: 20021001, end: 20041112
  5. SEROQUEL [Suspect]
     Route: 048
     Dates: start: 20021001, end: 20041112
  6. SEROQUEL [Suspect]
     Route: 048
     Dates: start: 20021001, end: 20041112
  7. GEODON [Concomitant]
     Route: 048
     Dates: start: 20060421, end: 20070101
  8. IMIPRAMINE PALMATE [Concomitant]
     Route: 048
     Dates: start: 20040801, end: 20041201
  9. INVEGA [Concomitant]
     Dates: start: 20070101, end: 20071001
  10. ABILIFY [Concomitant]
     Dates: start: 20050620, end: 20050721
  11. NEURONTIN [Concomitant]
  12. VITAMIN E [Concomitant]
  13. CLONAZEPAM [Concomitant]
  14. NEXIUM [Concomitant]
  15. TRAZODONE [Concomitant]
  16. PAXIL [Concomitant]
  17. LEXAPRO [Concomitant]
  18. REMERON [Concomitant]
  19. VIAGRA [Concomitant]
  20. NIASPAN [Concomitant]
  21. RANITIDINE [Concomitant]
  22. LIPITOR [Concomitant]
  23. ANDROGEL [Concomitant]
  24. CIPROFLAXACIN [Concomitant]
  25. DIOVAN [Concomitant]
  26. AVANDAMET [Concomitant]
  27. TOPAMAX [Concomitant]
     Indication: NIGHTMARE
  28. PROTONIX [Concomitant]
     Route: 048
  29. RISPERDAL [Concomitant]
     Dosage: 1 MG - 3 MG
     Route: 048

REACTIONS (7)
  - BLOOD CHOLESTEROL INCREASED [None]
  - DIABETES MELLITUS [None]
  - ERECTILE DYSFUNCTION [None]
  - HAEMOGLOBIN DECREASED [None]
  - HYPERTRIGLYCERIDAEMIA [None]
  - LIVER FUNCTION TEST ABNORMAL [None]
  - WEIGHT INCREASED [None]
